FAERS Safety Report 4715813-6 (Version None)
Quarter: 2005Q3

REPORT INFORMATION
  Report Type: 
  Country: None (occurrence: None)
  Receive Date: 20050715
  Receipt Date: 20050715
  Transmission Date: 20060218
  Serious: Yes (Other)
  Sender: FDA-Public Use
  Company Number: None

PATIENT
  Sex: Male
  Weight: 93 kg

DRUGS (3)
  1. BUSULFAN [Suspect]
     Indication: ACUTE MYELOID LEUKAEMIA
     Dosage: SEE IMAGE
     Route: 042
     Dates: start: 20041122, end: 20050313
  2. VP-16-213 [Suspect]
     Dosage: SEE IMAGE
     Route: 042
     Dates: end: 20050313
  3. G-CSF [Suspect]
     Dosage: SEE IMAGE
     Dates: end: 20050403

REACTIONS (16)
  - CLOSTRIDIUM COLITIS [None]
  - DRUG TOXICITY [None]
  - DYSPNOEA [None]
  - EJECTION FRACTION DECREASED [None]
  - FATIGUE [None]
  - HYPERVOLAEMIA [None]
  - HYPOTENSION [None]
  - ISCHAEMIA [None]
  - MALNUTRITION [None]
  - NAUSEA [None]
  - PERICARDIAL EFFUSION [None]
  - PNEUMONIA [None]
  - PYREXIA [None]
  - TRICUSPID VALVE INCOMPETENCE [None]
  - VENTRICULAR DYSFUNCTION [None]
  - VOMITING [None]
